FAERS Safety Report 7008454-1 (Version None)
Quarter: 2010Q3

REPORT INFORMATION
  Report Type: 
  Country: None (occurrence: None)
  Receive Date: 20100922
  Receipt Date: 20100920
  Transmission Date: 20110219
  Serious: Yes (Other)
  Sender: FDA-Public Use
  Company Number: US-WYE-H16905310

PATIENT
  Sex: Female
  Weight: 63.11 kg

DRUGS (8)
  1. PREMPRO [Suspect]
     Indication: MENOPAUSE
     Route: 048
     Dates: start: 20020101, end: 20090101
  2. PREMPRO [Suspect]
     Dosage: 1/2 TABLET 3 DAYS A WEEK AND A WHOLE TABLET 4 DAYS A WEEK
     Route: 048
     Dates: start: 20090101, end: 20090101
  3. PREMPRO [Suspect]
     Route: 048
     Dates: start: 20090101, end: 20100807
  4. PREMPRO [Suspect]
     Route: 048
     Dates: start: 20100808, end: 20100808
  5. PREMPRO [Suspect]
     Route: 048
     Dates: start: 20100809
  6. PREMPRO [Suspect]
     Dosage: 1/2 TABLET ONE DAY/WEEK AND A FULL TABLET THE OTHER 6 DAYS/WEEK
     Route: 048
     Dates: start: 20090101, end: 20090101
  7. VITAMINS [Concomitant]
  8. PROTONIX [Concomitant]
     Indication: PRODUCT USED FOR UNKNOWN INDICATION
     Dosage: UNKNOWN
     Route: 065

REACTIONS (6)
  - DEPRESSION [None]
  - DRUG DEPENDENCE [None]
  - DRUG INEFFECTIVE [None]
  - DRUG WITHDRAWAL SYNDROME [None]
  - PAIN [None]
  - WRONG TECHNIQUE IN DRUG USAGE PROCESS [None]
